FAERS Safety Report 25896311 (Version 1)
Quarter: 2025Q4

REPORT INFORMATION
  Report Type: Spontaneous
  Country: US (occurrence: US)
  Receive Date: 20251008
  Receipt Date: 20251008
  Transmission Date: 20260117
  Serious: No
  Sender: TELIX PHARMACEUTICALS
  Company Number: US-TLX-2025000063

PATIENT
  Age: 60 Year
  Sex: Male
  Weight: 95.71 kg

DRUGS (1)
  1. GOZELLIX [Suspect]
     Active Substance: GOZETOTIDE
     Indication: Diagnostic procedure
     Dosage: REQUESTED DOSE: 6.0 MCI?DISPENSED DOSE: 6.1 MCI?VOLUME: 8.2 ML?CALIBRATION TIME: 1:30 PM
     Route: 042
     Dates: start: 20250626, end: 20250626

REACTIONS (1)
  - Injection site pain [Recovered/Resolved]

NARRATIVE: CASE EVENT DATE: 20250626
